FAERS Safety Report 20146272 (Version 1)
Quarter: 2021Q4

REPORT INFORMATION
  Report Type: Spontaneous
  Country: US (occurrence: US)
  Receive Date: 20211203
  Receipt Date: 20211203
  Transmission Date: 20220303
  Serious: Yes (Disabling, Other)
  Sender: FDA-Public Use
  Company Number: US-BAYER-2021A260194

PATIENT
  Sex: Male

DRUGS (1)
  1. MIRALAX [Suspect]
     Active Substance: POLYETHYLENE GLYCOL 3350
     Dosage: 1 TABLESPOON IN 4 OUNCE OF WATER DOSE
     Route: 048

REACTIONS (3)
  - Femur fracture [Unknown]
  - Ankle fracture [Unknown]
  - Incorrect dose administered [Unknown]
